FAERS Safety Report 7109178-2 (Version None)
Quarter: 2010Q4

REPORT INFORMATION
  Report Type: 
  Country: None (occurrence: None)
  Receive Date: 20101117
  Receipt Date: 20101105
  Transmission Date: 20110411
  Serious: Yes (Hospitalization, Other)
  Sender: FDA-Public Use
  Company Number: US-ELI_LILLY_AND_COMPANY-US201004000743

PATIENT
  Sex: Female

DRUGS (13)
  1. FORTEO [Suspect]
     Indication: OSTEOPOROSIS
     Dosage: 20 UG, DAILY (1/D)
  2. REMICADE [Concomitant]
     Indication: COLITIS
     Dates: start: 20091201
  3. DILANTIN [Concomitant]
  4. METFORMIN [Concomitant]
  5. PREDNISONE [Concomitant]
  6. FUROSEMIDE [Concomitant]
  7. LOVASTATIN [Concomitant]
  8. ASPIRIN [Concomitant]
  9. SEROQUEL [Concomitant]
  10. PRISTIQ [Concomitant]
  11. VITAMIN D [Concomitant]
  12. MERCAPTOPURINE [Concomitant]
  13. PHENYTOIN [Concomitant]

REACTIONS (4)
  - CROHN'S DISEASE [None]
  - HYPOPHAGIA [None]
  - NAUSEA [None]
  - ULCER [None]
